FAERS Safety Report 4707489-9 (Version None)
Quarter: 2005Q3

REPORT INFORMATION
  Report Type: 
  Country: None (occurrence: None)
  Receive Date: 20050706
  Receipt Date: 20050629
  Transmission Date: 20060218
  Serious: Yes (Hospitalization)
  Sender: FDA-Public Use
  Company Number: JP-GLAXOSMITHKLINE-B0386381A

PATIENT
  Age: 79 Year
  Sex: Female

DRUGS (4)
  1. VALTREX [Suspect]
     Indication: HERPES ZOSTER
     Dosage: 1000MG THREE TIMES PER DAY
     Route: 048
     Dates: start: 20050606, end: 20050608
  2. AMLODIN [Concomitant]
     Dosage: 5MG PER DAY
     Route: 048
  3. ACTOS [Concomitant]
     Dosage: 10MG PER DAY
     Route: 048
  4. BASEN [Concomitant]
     Dosage: .6MG PER DAY
     Route: 048

REACTIONS (3)
  - DEPRESSED LEVEL OF CONSCIOUSNESS [None]
  - DIZZINESS [None]
  - URINARY RETENTION [None]
